FAERS Safety Report 24884471 (Version 2)
Quarter: 2025Q1

REPORT INFORMATION
  Report Type: Spontaneous
  Country: TW (occurrence: TW)
  Receive Date: 20250124
  Receipt Date: 20250128
  Transmission Date: 20250408
  Serious: No
  Sender: PFIZER
  Company Number: TW-MLMSERVICE-20250114-PI356627-00101-1

PATIENT
  Age: 50 Year
  Sex: Female

DRUGS (9)
  1. CISPLATIN [Suspect]
     Active Substance: CISPLATIN
     Indication: Endometriosis
     Dates: start: 2019, end: 2019
  2. CISPLATIN [Suspect]
     Active Substance: CISPLATIN
     Indication: Clear cell endometrial carcinoma
  3. CISPLATIN [Suspect]
     Active Substance: CISPLATIN
     Indication: Abdominal wall neoplasm malignant
  4. DOXORUBICIN HYDROCHLORIDE [Suspect]
     Active Substance: DOXORUBICIN HYDROCHLORIDE
     Indication: Endometriosis
     Dates: start: 2019, end: 2019
  5. DOXORUBICIN HYDROCHLORIDE [Suspect]
     Active Substance: DOXORUBICIN HYDROCHLORIDE
     Indication: Clear cell endometrial carcinoma
  6. DOXORUBICIN HYDROCHLORIDE [Suspect]
     Active Substance: DOXORUBICIN HYDROCHLORIDE
     Indication: Abdominal wall neoplasm malignant
  7. PACLITAXEL [Concomitant]
     Active Substance: PACLITAXEL
     Indication: Endometriosis
     Dates: start: 2019, end: 2019
  8. PACLITAXEL [Concomitant]
     Active Substance: PACLITAXEL
     Indication: Clear cell endometrial carcinoma
  9. PACLITAXEL [Concomitant]
     Active Substance: PACLITAXEL
     Indication: Abdominal wall neoplasm malignant

REACTIONS (1)
  - Off label use [Unknown]

NARRATIVE: CASE EVENT DATE: 20190101
